FAERS Safety Report 8099326-2 (Version None)
Quarter: 2012Q1

REPORT INFORMATION
  Report Type: 
  Country: None (occurrence: None)
  Receive Date: 20120131
  Receipt Date: 20120131
  Transmission Date: 20120608
  Serious: Yes (Hospitalization)
  Sender: FDA-Public Use
  Company Number: US-PFIZER INC-2007096295

PATIENT
  Sex: Male
  Weight: 72.109 kg

DRUGS (20)
  1. HYDROCHLOROTHIAZIDE [Concomitant]
     Route: 048
     Dates: start: 20041101
  2. ASPIRIN [Concomitant]
     Route: 048
     Dates: start: 20050601
  3. VITAMIN B-12 [Concomitant]
     Route: 048
     Dates: start: 20070401
  4. ATIVAN [Concomitant]
     Route: 048
     Dates: start: 20070701
  5. FLUOROURACIL [Concomitant]
     Route: 042
     Dates: start: 20070829
  6. OXYCODONE HCL [Concomitant]
     Route: 048
     Dates: start: 20071001
  7. ASPIRIN [Concomitant]
     Route: 048
     Dates: start: 20071001
  8. LISINOPRIL [Concomitant]
     Route: 048
     Dates: start: 20041101
  9. DOCUSATE SODIUM [Concomitant]
     Route: 048
     Dates: start: 20070301
  10. LEUCOVORIN CALCIUM [Concomitant]
     Route: 042
     Dates: start: 20070829
  11. ACETAMINOPHEN AND HYDROCODONE BITARTRATE [Concomitant]
     Route: 048
     Dates: start: 20070401
  12. DEXAMETHASONE [Concomitant]
     Route: 042
     Dates: start: 20070829
  13. FERROUS SULFATE TAB [Concomitant]
     Route: 048
     Dates: start: 20070401
  14. OXALIPLATIN [Concomitant]
     Route: 042
     Dates: start: 20071010
  15. OMEPRAZOLE [Concomitant]
     Route: 048
     Dates: start: 20071010
  16. SUNITINIB MALATE [Suspect]
     Indication: MALIGNANT NEOPLASM OF AMPULLA OF VATER
     Dosage: 25 MG, 1X/DAY 4/2 SCHEDULE
     Route: 048
     Dates: start: 20070829, end: 20071219
  17. DOLASETRON [Concomitant]
     Route: 042
     Dates: start: 20070829
  18. TYLENOL W/ CODEINE [Concomitant]
     Route: 048
     Dates: start: 20071009
  19. METOCLOPRAMIDE [Concomitant]
     Route: 048
     Dates: start: 20040401
  20. SENNA [Concomitant]
     Route: 048
     Dates: start: 20071003

REACTIONS (1)
  - ENTEROCUTANEOUS FISTULA [None]
